FAERS Safety Report 12831345 (Version 1)
Quarter: 2016Q4

REPORT INFORMATION
  Report Type: Spontaneous
  Country: GB (occurrence: GB)
  Receive Date: 20161008
  Receipt Date: 20161008
  Transmission Date: 20170207
  Serious: Yes (Other)
  Sender: FDA-Public Use
  Company Number: GB-ABBVIE-16P-167-1732504-00

PATIENT
  Age: 80 Year
  Sex: Male

DRUGS (4)
  1. ABIRATERONE [Suspect]
     Active Substance: ABIRATERONE
     Indication: PROSTATE CANCER METASTATIC
     Dosage: UNK
     Route: 048
     Dates: start: 20140402, end: 201409
  2. STILBOESTROL [Concomitant]
     Active Substance: DIETHYLSTILBESTROL
     Indication: PRODUCT USED FOR UNKNOWN INDICATION
     Dosage: UNK
     Route: 065
  3. ASPIRIN                            /00002701/ [Concomitant]
     Active Substance: ASPIRIN
     Indication: PRODUCT USED FOR UNKNOWN INDICATION
     Dosage: UNK
     Route: 065
  4. LUPRON DEPOT [Suspect]
     Active Substance: LEUPROLIDE ACETATE
     Indication: PROSTATE CANCER METASTATIC
     Dosage: UNK
     Route: 065
     Dates: start: 201104

REACTIONS (4)
  - Prostate cancer metastatic [Unknown]
  - Hypertension [Recovering/Resolving]
  - Musculoskeletal pain [Unknown]
  - Arthralgia [Unknown]

NARRATIVE: CASE EVENT DATE: 20140430
